FAERS Safety Report 15659227 (Version 2)
Quarter: 2019Q1

REPORT INFORMATION
  Report Type: Report from Study
  Country: US (occurrence: US)
  Receive Date: 20181127
  Receipt Date: 20190307
  Transmission Date: 20190417
  Serious: Yes (Hospitalization, Other)
  Sender: FDA-Public Use
  Company Number: US-ROCHE-2215807

PATIENT
  Age: 57 Year
  Sex: Female
  Weight: 108.96 kg

DRUGS (6)
  1. BENADRYL [Concomitant]
     Active Substance: DIPHENHYDRAMINE HYDROCHLORIDE
  2. OCREVUS [Suspect]
     Active Substance: OCRELIZUMAB
     Dosage: FIRST FULL DOSE
     Route: 042
     Dates: start: 201806, end: 201806
  3. OCREVUS [Suspect]
     Active Substance: OCRELIZUMAB
     Indication: RELAPSING MULTIPLE SCLEROSIS
     Dosage: FIRST SPLIT DOSE
     Route: 042
     Dates: start: 201712
  4. TYLENOL [Concomitant]
     Active Substance: ACETAMINOPHEN
  5. OCREVUS [Suspect]
     Active Substance: OCRELIZUMAB
     Dosage: SECOND FULL DOSE
     Route: 042
     Dates: start: 20181221, end: 20181221
  6. OCREVUS [Suspect]
     Active Substance: OCRELIZUMAB
     Dosage: 2ND SPLIT DOSE
     Route: 042
     Dates: start: 201712, end: 201712

REACTIONS (13)
  - Respiratory tract infection [Recovered/Resolved]
  - Pyrexia [Recovered/Resolved]
  - Hypoacusis [Recovered/Resolved]
  - Urinary retention [Unknown]
  - Fatigue [Recovered/Resolved]
  - Bronchitis [Not Recovered/Not Resolved]
  - Pneumonia [Not Recovered/Not Resolved]
  - Malaise [Recovered/Resolved]
  - Skin discolouration [Not Recovered/Not Resolved]
  - Sleep disorder [Not Recovered/Not Resolved]
  - Ear pruritus [Recovered/Resolved]
  - Throat irritation [Recovered/Resolved]
  - Cough [Not Recovered/Not Resolved]

NARRATIVE: CASE EVENT DATE: 201712
